FAERS Safety Report 18782829 (Version 2)
Quarter: 2022Q1

REPORT INFORMATION
  Report Type: Spontaneous
  Country: US (occurrence: US)
  Receive Date: 20210125
  Receipt Date: 20220303
  Transmission Date: 20220423
  Serious: No
  Sender: FDA-Public Use
  Company Number: US-ALLERGAN-2048231US

PATIENT
  Age: 67 Year
  Sex: Female

DRUGS (1)
  1. RESTASIS [Suspect]
     Active Substance: CYCLOSPORINE
     Indication: Dry eye
     Dosage: UNK
     Route: 047
     Dates: start: 202007

REACTIONS (7)
  - Visual impairment [Unknown]
  - Product storage error [Unknown]
  - Ocular hyperaemia [Not Recovered/Not Resolved]
  - Eye irritation [Recovered/Resolved]
  - Eye discharge [Recovered/Resolved]
  - Foreign body sensation in eyes [Recovered/Resolved]
  - Drug ineffective [Unknown]

NARRATIVE: CASE EVENT DATE: 20200701
